FAERS Safety Report 8929223 (Version 1)
Quarter: 2012Q4

REPORT INFORMATION
  Report Type: Spontaneous
  Country: DK (occurrence: None)
  Receive Date: 20121120
  Receipt Date: 20121120
  Transmission Date: 20130627
  Serious: Yes (Other)
  Sender: FDA-Public Use
  Company Number: 2012MA013470

PATIENT
  Age: 4 Year
  Sex: Female

DRUGS (9)
  1. PHENOBARBITAL [Suspect]
     Indication: TONIC-CLONIC SEIZURES
     Route: 048
     Dates: start: 20120814, end: 20120928
  2. FOLIC ACID [Concomitant]
  3. ATENOLOL [Concomitant]
  4. RANITIDINE [Concomitant]
  5. CLOTRIMAZOLE [Concomitant]
  6. MELATONIN [Concomitant]
  7. CHLORAL HYDRATE [Concomitant]
  8. SEVELAMER [Concomitant]
  9. PHENOXYMETHYLPENICILLIN [Concomitant]

REACTIONS (1)
  - White blood cell count decreased [None]
